FAERS Safety Report 8781984 (Version 1)
Quarter: 2012Q4

REPORT INFORMATION
  Report Type: Report from Study
  Country: US (occurrence: US)
  Receive Date: 20120913
  Receipt Date: 20120913
  Transmission Date: 20130627
  Serious: No
  Sender: FDA-Public Use
  Company Number: US-VERTEX PHARMACEUTICAL INC.-AE-2012-008700

PATIENT

DRUGS (6)
  1. INCIVEK [Suspect]
     Indication: HEPATITIS C
     Route: 048
     Dates: start: 20120531
  2. PEGASYS PROCLICK [Concomitant]
     Indication: HEPATITIS C
     Route: 058
  3. RIBAVIRIN [Concomitant]
     Indication: HEPATITIS C
  4. HUMALOG [Concomitant]
  5. PRISTIQ [Concomitant]
  6. TYLENOL PM EX ST [Concomitant]

REACTIONS (8)
  - Influenza like illness [Unknown]
  - Pyrexia [Unknown]
  - Gastrooesophageal reflux disease [Unknown]
  - Abdominal discomfort [Unknown]
  - Fatigue [Unknown]
  - Haemorrhoids [Unknown]
  - Rectal haemorrhage [Unknown]
  - Diarrhoea [Unknown]
